FAERS Safety Report 14891315 (Version 2)
Quarter: 2019Q2

REPORT INFORMATION
  Report Type: Spontaneous
  Country: US (occurrence: US)
  Receive Date: 20180514
  Receipt Date: 20190624
  Transmission Date: 20190711
  Serious: No
  Sender: FDA-Public Use
  Company Number: US-UNITED THERAPEUTICS-UNT-2017-017917

PATIENT
  Sex: Male

DRUGS (2)
  1. REMODULIN [Suspect]
     Active Substance: TREPROSTINIL
     Indication: PULMONARY ARTERIAL HYPERTENSION
     Dosage: 0.05025 ?G/KG, CONTINUING
     Route: 058
     Dates: start: 20170411
  2. REMODULIN [Suspect]
     Active Substance: TREPROSTINIL
     Dosage: INFUSION RATE OF 0.028 ML/HR
     Route: 058

REACTIONS (2)
  - Device infusion issue [Unknown]
  - Malaise [Recovering/Resolving]

NARRATIVE: CASE EVENT DATE: 20171212
